FAERS Safety Report 6142848-1 (Version None)
Quarter: 2009Q1

REPORT INFORMATION
  Report Type: 
  Country: None (occurrence: None)
  Receive Date: 20090327
  Receipt Date: 20090313
  Transmission Date: 20090719
  Serious: Yes (Hospitalization)
  Sender: FDA-Public Use
  Company Number: THYM-1000952

PATIENT
  Age: 63 Year
  Sex: Female
  Weight: 68.7 kg

DRUGS (5)
  1. THYMOGLOBULIN [Suspect]
     Indication: RENAL TRANSPLANT
     Dosage: 100 MG, INTRAVENOUS
     Route: 042
     Dates: start: 20090303, end: 20090312
  2. BORTEZOMIB (BORTEZOMIB) [Concomitant]
  3. PREDNISONE TAB [Concomitant]
  4. TACROLIMUS [Concomitant]
  5. CELLCEPT [Concomitant]

REACTIONS (2)
  - ANAEMIA [None]
  - DIARRHOEA [None]
